FAERS Safety Report 7572131-9 (Version None)
Quarter: 2011Q2

REPORT INFORMATION
  Report Type: 
  Country: None (occurrence: None)
  Receive Date: 20110624
  Receipt Date: 20110615
  Transmission Date: 20111010
  Serious: Yes (Death, Life-Threatening, Hospitalization)
  Sender: FDA-Public Use
  Company Number: NL-GENZYME-CLOF-1000758

PATIENT
  Sex: Female
  Weight: 85 kg

DRUGS (5)
  1. IDARUBICIN HCL [Suspect]
     Indication: ACUTE MYELOID LEUKAEMIA
     Dosage: 20 MG, QOD
     Route: 042
     Dates: start: 20091015, end: 20091019
  2. CIPROFLOXACIN [Concomitant]
     Indication: PROPHYLAXIS
     Dosage: 500 MG, BID
     Route: 048
     Dates: start: 20091013, end: 20091025
  3. EVOLTRA [Suspect]
     Indication: ACUTE MYELOID LEUKAEMIA
     Dosage: 30 MG, QOD
     Route: 042
     Dates: start: 20091016, end: 20091024
  4. CYTARABINE [Suspect]
     Indication: ACUTE MYELOID LEUKAEMIA
     Dosage: 200 MG, QD
     Route: 065
     Dates: start: 20091015, end: 20091024
  5. CIPROFLOXACIN [Concomitant]
     Dosage: 400 MG, BID
     Route: 042
     Dates: start: 20091025, end: 20091104

REACTIONS (4)
  - SEPSIS [None]
  - FEBRILE NEUTROPENIA [None]
  - HYPOTENSION [None]
  - MULTI-ORGAN FAILURE [None]
